FAERS Safety Report 23705049 (Version 1)
Quarter: 2024Q2

REPORT INFORMATION
  Report Type: Spontaneous
  Country: US (occurrence: US)
  Receive Date: 20240404
  Receipt Date: 20240404
  Transmission Date: 20240716
  Serious: Yes (Other)
  Sender: FDA-Public Use
  Company Number: US-ALKEM LABORATORIES LIMITED-US-ALKEM-2024-06248

PATIENT

DRUGS (3)
  1. TIZANIDINE [Suspect]
     Active Substance: TIZANIDINE
     Indication: Product used for unknown indication
     Dosage: 6 MILLIGRAM
     Route: 065
  2. BACLOFEN [Suspect]
     Active Substance: BACLOFEN
     Indication: Product used for unknown indication
     Dosage: 240 MILLIGRAM
     Route: 065
  3. BACLOFEN [Suspect]
     Active Substance: BACLOFEN
     Dosage: 40 MILLIGRAM (RESTARTED DOSE)
     Route: 065

REACTIONS (6)
  - Delirium [Unknown]
  - Hallucination, visual [Unknown]
  - Muscle rigidity [Unknown]
  - Withdrawal syndrome [Unknown]
  - Hypertension [Unknown]
  - Tachycardia [Unknown]
